FAERS Safety Report 23360536 (Version 2)
Quarter: 2024Q1

REPORT INFORMATION
  Report Type: Spontaneous
  Country: US (occurrence: None)
  Receive Date: 20240103
  Receipt Date: 20240125
  Transmission Date: 20240409
  Serious: No
  Sender: FDA-Public Use
  Company Number: 2023A276059

PATIENT

DRUGS (1)
  1. FASENRA [Suspect]
     Active Substance: BENRALIZUMAB
     Route: 058

REACTIONS (13)
  - Arthralgia [Unknown]
  - Fatigue [Unknown]
  - Hypotension [Unknown]
  - Hypoaesthesia oral [Unknown]
  - Dandruff [Unknown]
  - Alopecia [Unknown]
  - Rash pruritic [Unknown]
  - Increased viscosity of upper respiratory secretion [Unknown]
  - Dizziness [Unknown]
  - Balance disorder [Unknown]
  - Dry skin [Unknown]
  - Skin exfoliation [Unknown]
  - Headache [Unknown]
